FAERS Safety Report 9723815 (Version 3)
Quarter: 2014Q1

REPORT INFORMATION
  Report Type: Report from Study
  Country: US (occurrence: US)
  Receive Date: 20131202
  Receipt Date: 20140324
  Transmission Date: 20141002
  Serious: Yes (Death, Life-Threatening, Hospitalization)
  Sender: FDA-Public Use
  Company Number: US-JNJFOC-20121101903

PATIENT
  Age: 70 Year
  Sex: Male
  Weight: 110 kg

DRUGS (5)
  1. IBRUTINIB [Suspect]
     Route: 048
  2. IBRUTINIB [Suspect]
     Indication: MANTLE CELL LYMPHOMA
     Route: 048
     Dates: start: 20121012, end: 20121030
  3. DIGOXIN [Concomitant]
     Route: 065
  4. LASIX [Concomitant]
     Route: 065
  5. PRADAXA [Concomitant]
     Route: 065

REACTIONS (3)
  - Respiratory failure [Fatal]
  - Pleural effusion [Not Recovered/Not Resolved]
  - Hyperuricaemia [Not Recovered/Not Resolved]
